FAERS Safety Report 17700490 (Version 1)
Quarter: 2020Q2

REPORT INFORMATION
  Report Type: Report from Study
  Country: US (occurrence: US)
  Receive Date: 20200423
  Receipt Date: 20200423
  Transmission Date: 20200714
  Serious: Yes (Hospitalization)
  Sender: FDA-Public Use
  Company Number: US-MYLANLABS-2020M1040191

PATIENT
  Age: 89 Year
  Sex: Female
  Weight: 48.8 kg

DRUGS (4)
  1. AZACITIDINE. [Suspect]
     Active Substance: AZACITIDINE
     Indication: ACUTE MYELOID LEUKAEMIA
     Dosage: 120 MILLIGRAM
     Route: 042
     Dates: start: 20190607, end: 20200209
  2. TRANEXAMIC ACID. [Suspect]
     Active Substance: TRANEXAMIC ACID
     Indication: ATRIAL FIBRILLATION
     Dosage: 1300 MILLIGRAM, TID
     Route: 048
     Dates: start: 20200113, end: 20200302
  3. AMLODIPINE BESILATE [Concomitant]
     Active Substance: AMLODIPINE BESYLATE
     Indication: BLOOD CHOLESTEROL
     Dosage: 2.5 MILLIGRAM, QD
     Route: 048
     Dates: start: 20200303, end: 20200304
  4. ROSUVASTATIN. [Concomitant]
     Active Substance: ROSUVASTATIN
     Indication: BLOOD CHOLESTEROL
     Dosage: 20 MILLIGRAM, QD
     Route: 048
     Dates: start: 20200304

REACTIONS (4)
  - Memory impairment [Unknown]
  - Aphasia [Unknown]
  - Confusional state [Unknown]
  - Cerebrovascular accident [Not Recovered/Not Resolved]

NARRATIVE: CASE EVENT DATE: 202002
